FAERS Safety Report 18105985 (Version 1)
Quarter: 2020Q3

REPORT INFORMATION
  Report Type: Spontaneous
  Country: US (occurrence: US)
  Receive Date: 20200803
  Receipt Date: 20200803
  Transmission Date: 20201103
  Serious: Yes (Hospitalization, Other)
  Sender: FDA-Public Use
  Company Number: US-RIGEL PHARMACEUTICALS, INC.-2020FOS000365

PATIENT
  Sex: Female

DRUGS (2)
  1. TAVALISSE [Suspect]
     Active Substance: FOSTAMATINIB
     Indication: VON WILLEBRAND^S DISEASE
     Dosage: UNK
  2. TAVALISSE [Suspect]
     Active Substance: FOSTAMATINIB
     Indication: IMMUNE THROMBOCYTOPENIA

REACTIONS (8)
  - Hepatic enzyme increased [Unknown]
  - Blood pressure fluctuation [Unknown]
  - Hemiplegia [Unknown]
  - Bowel movement irregularity [Unknown]
  - Wrong technique in product usage process [Unknown]
  - Seizure [Unknown]
  - Cerebrovascular accident [Unknown]
  - Gastrointestinal tube insertion [Unknown]

NARRATIVE: CASE EVENT DATE: 2020
